FAERS Safety Report 24574260 (Version 2)
Quarter: 2024Q4

REPORT INFORMATION
  Report Type: Spontaneous
  Country: CZ (occurrence: CZ)
  Receive Date: 20241104
  Receipt Date: 20241114
  Transmission Date: 20250115
  Serious: No
  Sender: CELLTRION
  Company Number: CZ-CELLTRION INC.-2024CZ026615

PATIENT

DRUGS (7)
  1. INFLIXIMAB [Suspect]
     Active Substance: INFLIXIMAB
     Indication: Behcet^s syndrome
     Dosage: COMBINATION OF INFLIXIMAB, PREDNISONE, AND AZATHIOPRINE
  2. ADALIMUMAB [Suspect]
     Active Substance: ADALIMUMAB
     Indication: Behcet^s syndrome
     Dosage: ADALIMUMAB COMBINED WITH A LOW DOSE OF PREDNISONE AND AZATHIOPRINE WAS INITIATED
  3. PREDNISONE [Suspect]
     Active Substance: PREDNISONE
     Indication: Behcet^s syndrome
     Dosage: COMBINATION OF INFLIXIMAB, PREDNISONE, AND AZATHIOPRINE
  4. PREDNISONE [Suspect]
     Active Substance: PREDNISONE
     Dosage: ADALIMUMAB COMBINED WITH A LOW DOSE OF PREDNISONE AND AZATHIOPRINE WAS INITIATED
  5. AZATHIOPRINE [Suspect]
     Active Substance: AZATHIOPRINE
     Indication: Behcet^s syndrome
     Dosage: COMBINATION OF INFLIXIMAB, PREDNISONE, AND AZATHIOPRINE
  6. AZATHIOPRINE [Suspect]
     Active Substance: AZATHIOPRINE
     Dosage: ADALIMUMAB COMBINED WITH A LOW DOSE OF PREDNISONE AND AZATHIOPRINE WAS INITIATED
  7. MYCOPHENOLATE MOFETIL [Suspect]
     Active Substance: MYCOPHENOLATE MOFETIL
     Indication: Behcet^s syndrome
     Dosage: UNK

REACTIONS (3)
  - Latent tuberculosis [Unknown]
  - Therapeutic product effect decreased [Recovered/Resolved]
  - Drug effective for unapproved indication [Unknown]
